FAERS Safety Report 25890941 (Version 1)
Quarter: 2025Q4

REPORT INFORMATION
  Report Type: Spontaneous
  Country: US (occurrence: US)
  Receive Date: 20251007
  Receipt Date: 20251007
  Transmission Date: 20260118
  Serious: No
  Sender: LUPIN
  Company Number: US-LUPIN PHARMACEUTICALS INC.-2025-08924

PATIENT
  Age: 35 Year
  Weight: 77.098 kg

DRUGS (1)
  1. LEVOTHYROXINE SODIUM [Suspect]
     Active Substance: LEVOTHYROXINE SODIUM
     Indication: Product used for unknown indication
     Dosage: UNK
     Route: 065

REACTIONS (6)
  - Headache [Unknown]
  - Migraine [Unknown]
  - Gastrointestinal disorder [Unknown]
  - Abdominal distension [Unknown]
  - Arthralgia [Unknown]
  - Abdominal pain upper [Unknown]
